FAERS Safety Report 9784115 (Version 2)
Quarter: 2014Q1

REPORT INFORMATION
  Report Type: Spontaneous
  Country: JP (occurrence: JP)
  Receive Date: 20131226
  Receipt Date: 20140129
  Transmission Date: 20141002
  Serious: Yes (Other)
  Sender: FDA-Public Use
  Company Number: JP-BAYER-2013-155463

PATIENT
  Age: 79 Year
  Sex: Female

DRUGS (1)
  1. STIVARGA [Suspect]
     Indication: GASTROINTESTINAL STROMAL TUMOUR
     Dosage: 80 MG, QD
     Route: 048
     Dates: start: 20131209

REACTIONS (1)
  - Urinary retention [Recovering/Resolving]
